FAERS Safety Report 9383663 (Version 1)
Quarter: 2013Q3

REPORT INFORMATION
  Report Type: Spontaneous
  Country: JP (occurrence: JP)
  Receive Date: 20130704
  Receipt Date: 20130704
  Transmission Date: 20140515
  Serious: Yes (Death, Other)
  Sender: FDA-Public Use
  Company Number: JP-JNJFOC-20130515617

PATIENT
  Age: 70 Year
  Sex: Male
  Weight: 72 kg

DRUGS (5)
  1. XARELTO [Suspect]
     Indication: THROMBOSIS PROPHYLAXIS
     Route: 048
     Dates: start: 20130301, end: 20130504
  2. XARELTO [Suspect]
     Indication: CEREBROVASCULAR ACCIDENT PROPHYLAXIS
     Route: 048
     Dates: start: 20130301, end: 20130504
  3. XARELTO [Suspect]
     Indication: ATRIAL FIBRILLATION
     Route: 048
     Dates: start: 20130301, end: 20130504
  4. ASPENON [Concomitant]
     Route: 048
     Dates: start: 20130504
  5. BEPRIDIL [Concomitant]
     Indication: ARRHYTHMIA
     Route: 048
     Dates: start: 20130504

REACTIONS (2)
  - Cerebral haemorrhage [Fatal]
  - Fall [Unknown]
